FAERS Safety Report 7339537-4 (Version None)
Quarter: 2011Q1

REPORT INFORMATION
  Report Type: 
  Country: None (occurrence: None)
  Receive Date: 20110308
  Receipt Date: 20110202
  Transmission Date: 20110831
  Serious: No
  Sender: FDA-Public Use
  Company Number: US-AMGEN-USASP2011006602

PATIENT
  Age: 50 Year
  Sex: Female

DRUGS (5)
  1. SYNTHROID [Concomitant]
  2. AMITIZA [Concomitant]
  3. SIMVASTATIN [Concomitant]
  4. MIRALAX [Concomitant]
  5. PROLIA [Suspect]
     Indication: OSTEOPOROSIS POSTMENOPAUSAL
     Dosage: 60 MG, Q6MO
     Dates: start: 20110111

REACTIONS (5)
  - DISCOMFORT [None]
  - INJECTION SITE PAIN [None]
  - ARTHRALGIA [None]
  - PAIN IN EXTREMITY [None]
  - BACK PAIN [None]
